FAERS Safety Report 14989050 (Version 1)
Quarter: 2018Q2

REPORT INFORMATION
  Report Type: Spontaneous
  Country: CA (occurrence: CA)
  Receive Date: 20180608
  Receipt Date: 20180608
  Transmission Date: 20180711
  Serious: Yes (Hospitalization)
  Sender: FDA-Public Use
  Company Number: CA-MERZ NORTH AMERICA, INC.-18MRZ-00296

PATIENT
  Age: 82 Year
  Sex: Male

DRUGS (1)
  1. XEOMIN [Suspect]
     Active Substance: INCOBOTULINUMTOXINA
     Indication: MUSCLE SPASTICITY
     Route: 030

REACTIONS (2)
  - Malaise [Unknown]
  - Hypophagia [Unknown]
